FAERS Safety Report 21122108 (Version 1)
Quarter: 2022Q3

REPORT INFORMATION
  Report Type: Spontaneous
  Country: US (occurrence: US)
  Receive Date: 20220722
  Receipt Date: 20220722
  Transmission Date: 20221027
  Serious: No
  Sender: FDA-Public Use
  Company Number: US-SA-SAC20220721001276

PATIENT
  Age: 62 Year
  Sex: Male

DRUGS (1)
  1. JEVTANA [Suspect]
     Active Substance: CABAZITAXEL
     Indication: Bone cancer
     Dosage: 60MG/1.15ML, Q3W
     Route: 041
     Dates: start: 20220429

REACTIONS (2)
  - Weight decreased [Recovered/Resolved]
  - Product used for unknown indication [Unknown]
